FAERS Safety Report 5079179-7 (Version None)
Quarter: 2006Q3

REPORT INFORMATION
  Report Type: 
  Country: None (occurrence: None)
  Receive Date: 20060814
  Receipt Date: 20060809
  Transmission Date: 20061208
  Serious: Yes (Hospitalization)
  Sender: FDA-Public Use
  Company Number: GB-GLAXOSMITHKLINE-B0433651A

PATIENT

DRUGS (3)
  1. ACYCLOVIR [Suspect]
     Route: 048
  2. WARFARIN SODIUM [Concomitant]
  3. ANTIBIOTICS [Concomitant]

REACTIONS (1)
  - INTERNATIONAL NORMALISED RATIO INCREASED [None]
